FAERS Safety Report 21948474 (Version 2)
Quarter: 2023Q1

REPORT INFORMATION
  Report Type: Spontaneous
  Country: US (occurrence: None)
  Receive Date: 20230203
  Receipt Date: 20230214
  Transmission Date: 20230418
  Serious: No
  Sender: FDA-Public Use
  Company Number: 2023A022522

PATIENT
  Age: 27563 Day
  Sex: Male
  Weight: 95.3 kg

DRUGS (1)
  1. BRILINTA [Suspect]
     Active Substance: TICAGRELOR
     Indication: Stent placement
     Route: 048
     Dates: start: 20230124

REACTIONS (3)
  - Sleep disorder [Unknown]
  - Dyspnoea [Unknown]
  - Medication error [Unknown]

NARRATIVE: CASE EVENT DATE: 20230124
